FAERS Safety Report 4412563-0 (Version None)
Quarter: 2004Q3

REPORT INFORMATION
  Report Type: 
  Country: None (occurrence: None)
  Receive Date: 20040731
  Receipt Date: 20030929
  Transmission Date: 20050211
  Serious: Yes (Hospitalization, Other)
  Sender: FDA-Public Use
  Company Number: US-MERCK-0310USA00124

PATIENT
  Sex: Female
  Weight: 77 kg

DRUGS (12)
  1. VIOXX [Suspect]
     Indication: OSTEOARTHRITIS
     Route: 048
     Dates: start: 19991116, end: 20010101
  2. VIOXX [Suspect]
     Route: 048
     Dates: start: 20010129, end: 20010303
  3. DETROL [Concomitant]
     Route: 048
     Dates: start: 20000116
  4. PREDNISONE [Concomitant]
     Route: 048
     Dates: start: 20000622
  5. VIOXX [Suspect]
     Indication: ARTHRALGIA
     Route: 048
     Dates: start: 19991116, end: 20010101
  6. VIOXX [Suspect]
     Route: 048
     Dates: start: 20010129, end: 20010303
  7. ASPIRIN [Concomitant]
     Indication: CARDIAC MURMUR
     Route: 065
     Dates: start: 19890101, end: 20040511
  8. ASPIRIN [Concomitant]
     Indication: DYSPEPSIA
     Route: 065
     Dates: start: 19890101, end: 20040511
  9. LOTENSIN [Concomitant]
     Indication: BLOOD PRESSURE ABNORMAL
     Route: 048
     Dates: start: 19991001, end: 20010625
  10. ZYRTEC [Concomitant]
     Indication: HYPERSENSITIVITY
     Route: 048
     Dates: start: 20000101
  11. FLONASE [Concomitant]
     Route: 055
     Dates: start: 20000128
  12. HYDRO-CHLOR [Concomitant]
     Indication: HYPERTENSION
     Route: 065

REACTIONS (19)
  - ANAPHYLACTIC REACTION [None]
  - ASTHMA [None]
  - BLOOD CHOLESTEROL INCREASED [None]
  - CARPAL TUNNEL SYNDROME [None]
  - CEREBROVASCULAR ACCIDENT [None]
  - CHRONIC OBSTRUCTIVE AIRWAYS DISEASE [None]
  - DEEP VEIN THROMBOSIS [None]
  - DIASTOLIC DYSFUNCTION [None]
  - DRUG INEFFECTIVE [None]
  - EMOTIONAL DISTRESS [None]
  - EPISTAXIS [None]
  - FEELING ABNORMAL [None]
  - GASTROOESOPHAGEAL REFLUX DISEASE [None]
  - HEART RATE IRREGULAR [None]
  - LUNG DISORDER [None]
  - MUSCLE CRAMP [None]
  - OEDEMA PERIPHERAL [None]
  - OSTEOARTHRITIS [None]
  - SWELLING FACE [None]
